FAERS Safety Report 14357191 (Version 1)
Quarter: 2018Q1

REPORT INFORMATION
  Report Type: Spontaneous
  Country: US (occurrence: US)
  Receive Date: 20180105
  Receipt Date: 20180105
  Transmission Date: 20180509
  Serious: No
  Sender: FDA-Public Use
  Company Number: US-BAYER-2018-000993

PATIENT
  Age: 11 Year
  Sex: Male
  Weight: 45.35 kg

DRUGS (6)
  1. STRATTERA [Concomitant]
     Active Substance: ATOMOXETINE HYDROCHLORIDE
  2. ZEGERID OTC CAPSULES [Suspect]
     Active Substance: OMEPRAZOLE\SODIUM BICARBONATE
     Indication: GASTROOESOPHAGEAL REFLUX DISEASE
     Dosage: 1 DF, BID
     Route: 048
     Dates: start: 2015
  3. ZANTAC [Concomitant]
     Active Substance: RANITIDINE HYDROCHLORIDE
  4. ZYRTEC [Concomitant]
     Active Substance: CETIRIZINE HYDROCHLORIDE
  5. CITICOLINE [Concomitant]
     Active Substance: CITICOLINE
  6. ZEGERID OTC CAPSULES [Suspect]
     Active Substance: OMEPRAZOLE\SODIUM BICARBONATE
     Indication: OROPHARYNGEAL DISCOMFORT

REACTIONS (5)
  - Off label use [None]
  - Drug administered to patient of inappropriate age [None]
  - Drug prescribing error [None]
  - Product use issue [None]
  - Product use in unapproved indication [None]

NARRATIVE: CASE EVENT DATE: 2015
